FAERS Safety Report 15676800 (Version 1)
Quarter: 2018Q4

REPORT INFORMATION
  Report Type: Spontaneous
  Country: NL (occurrence: NL)
  Receive Date: 20181130
  Receipt Date: 20181130
  Transmission Date: 20190205
  Serious: Yes (Other)
  Sender: FDA-Public Use
  Company Number: NL-TEVA-2018-NL-979990

PATIENT
  Age: 51 Year
  Sex: Male
  Weight: 80 kg

DRUGS (8)
  1. PIPERACILLINE/TAZOBACTAM 400/500MG [Concomitant]
     Dosage: 3 DOSAGE FORMS DAILY; 400/500MG 3DD1 IV
  2. MIDAZOLAM 50MG/50ML [Concomitant]
     Dosage: 3 MILLIGRAM DAILY; 3DD1MG IV
  3. DALTEPARINE 2500IE [Concomitant]
     Dosage: 1 DOSAGE FORMS DAILY; 1DD1
  4. SUFENTANIL 100UG/50ML [Concomitant]
     Dosage: 8UG/HOUR IV
  5. HALOPERIDOL. [Concomitant]
     Active Substance: HALOPERIDOL
     Dosage: 5MG/ML IF NECESSARY
  6. PANTOPRAZOL [Concomitant]
     Active Substance: PANTOPRAZOLE SODIUM
     Dosage: 40 MILLIGRAM DAILY; 1DD40MG IV
  7. FLUCONAZOL / INFUSIEVLOEISTOF, 2 MG/ML (MILLIGRAM PER MILLILITER) [Suspect]
     Active Substance: FLUCONAZOLE
     Indication: SEPSIS
     Dosage: 400 MILLIGRAM DAILY; 1X PER DAY 400MG
     Dates: start: 20181010
  8. METOCLOPRAMIDE 5MG/ML [Concomitant]
     Active Substance: METOCLOPRAMIDE
     Dosage: 30 MILLIGRAM DAILY; 3DD10MG IV

REACTIONS (3)
  - Gamma-glutamyltransferase increased [Not Recovered/Not Resolved]
  - Blood alkaline phosphatase increased [Not Recovered/Not Resolved]
  - Hyperbilirubinaemia [Not Recovered/Not Resolved]

NARRATIVE: CASE EVENT DATE: 20181014
